FAERS Safety Report 6619264-9 (Version None)
Quarter: 2010Q1

REPORT INFORMATION
  Report Type: 
  Country: None (occurrence: None)
  Receive Date: 20100303
  Receipt Date: 20100217
  Transmission Date: 20100710
  Serious: Yes (Other)
  Sender: FDA-Public Use
  Company Number: NO-001540

PATIENT
  Age: 14 Year
  Sex: Female

DRUGS (2)
  1. SOMATROPIN (SOMATROPIN) [Suspect]
  2. GENOTROPIN [Suspect]
     Dosage: SUBCUTANEOUS
     Route: 058

REACTIONS (1)
  - HEPATIC NEOPLASM MALIGNANT [None]
